FAERS Safety Report 21380882 (Version 2)
Quarter: 2022Q4

REPORT INFORMATION
  Report Type: Spontaneous
  Country: US (occurrence: None)
  Receive Date: 20220927
  Receipt Date: 20221017
  Transmission Date: 20230112
  Serious: No
  Sender: FDA-Public Use
  Company Number: US-FARMAPROD-202209-1800

PATIENT
  Age: 89 Year
  Sex: Male

DRUGS (17)
  1. OXERVATE [Suspect]
     Active Substance: CENEGERMIN-BKBJ
     Indication: Neurotrophic keratopathy
     Route: 047
     Dates: start: 20220728, end: 20220922
  2. SODIUM BICARBONATE [Concomitant]
     Active Substance: SODIUM BICARBONATE
  3. CRESTOR [Concomitant]
     Active Substance: ROSUVASTATIN CALCIUM
  4. VITAMINS [Concomitant]
     Active Substance: VITAMINS
  5. VALPROIC ACID [Concomitant]
     Active Substance: VALPROIC ACID
  6. LEVOTHYROXINE [Concomitant]
     Active Substance: LEVOTHYROXINE
  7. ISOSORBIDE MONONITRATE [Concomitant]
     Active Substance: ISOSORBIDE MONONITRATE
     Dosage: EXTENDED RELEASE
  8. FINASTERIDE [Concomitant]
     Active Substance: FINASTERIDE
  9. ELIQUIS [Concomitant]
     Active Substance: APIXABAN
  10. PLAVIX [Concomitant]
     Active Substance: CLOPIDOGREL BISULFATE
  11. FERROUS SULFATE [Concomitant]
     Active Substance: FERROUS SULFATE
     Dosage: 325(65) MG
  12. COENZYME Q10 [Concomitant]
     Active Substance: DIETARY SUPPLEMENT\UBIDECARENONE
  13. REFRESH TEARS [Concomitant]
     Active Substance: CARBOXYMETHYLCELLULOSE SODIUM
  14. POLYMYXIN B SUL-TRIMETHOPRIM [Concomitant]
     Indication: Neurotrophic keratopathy
     Route: 061
     Dates: start: 202003
  15. LOTEMAX [Concomitant]
     Active Substance: LOTEPREDNOL ETABONATE
     Indication: Neurotrophic keratopathy
     Dosage: 2 TIMES DAILY, RIGHT EYE?1 TIME DAILY, LEFT EYE.
     Dates: start: 201709
  16. ARANESP [Concomitant]
     Active Substance: DARBEPOETIN ALFA
     Dosage: 100 MCG/0.5 SYRINGE
  17. TEARS PF [Concomitant]
     Indication: Neurotrophic keratopathy
     Dosage: AS MUCH AS NEEDED
     Dates: start: 201508

REACTIONS (1)
  - Product administration error [Recovered/Resolved]

NARRATIVE: CASE EVENT DATE: 20220728
